FAERS Safety Report 9279434 (Version 1)
Quarter: 2013Q2

REPORT INFORMATION
  Report Type: Spontaneous
  Country: AU (occurrence: AU)
  Receive Date: 20130508
  Receipt Date: 20130508
  Transmission Date: 20140414
  Serious: Yes (Hospitalization)
  Sender: FDA-Public Use
  Company Number: AU-009507513-2012SP032393

PATIENT
  Age: 53 Year
  Sex: Female

DRUGS (5)
  1. PEGATRON [Suspect]
     Indication: HEPATIC CIRRHOSIS
     Dosage: 1 DF, UNK
     Dates: start: 20120505, end: 2012
  2. PEGATRON [Suspect]
     Dosage: UNK
     Dates: start: 2012
  3. VICTRELIS 200 MG [Suspect]
     Dosage: 600 MG,QD
     Route: 048
     Dates: start: 20120504, end: 2012
  4. VICTRELIS 200 MG [Suspect]
     Dosage: UNK
     Dates: start: 2012
  5. METOCLOPRAMIDE [Concomitant]
     Dosage: UNK

REACTIONS (3)
  - Abdominal pain [Not Recovered/Not Resolved]
  - Febrile neutropenia [Not Recovered/Not Resolved]
  - Rash papular [Not Recovered/Not Resolved]
